FAERS Safety Report 5618772-7 (Version None)
Quarter: 2008Q1

REPORT INFORMATION
  Report Type: 
  Country: None (occurrence: None)
  Receive Date: 20080207
  Receipt Date: 20080130
  Transmission Date: 20080703
  Serious: Yes (Other)
  Sender: FDA-Public Use
  Company Number: US-PFIZER INC-2008000583

PATIENT
  Sex: Male
  Weight: 58.5 kg

DRUGS (8)
  1. LIPITOR [Suspect]
     Indication: BLOOD CHOLESTEROL
     Route: 048
     Dates: start: 20060501, end: 20071001
  2. LIPITOR [Suspect]
     Indication: HYPERLIPIDAEMIA
  3. LYRICA [Suspect]
     Indication: BACK PAIN
  4. PREDNISONE TAB [Suspect]
  5. ACIPHEX [Concomitant]
  6. PERCOCET [Concomitant]
  7. OLIVE OIL [Concomitant]
  8. FISH OIL [Concomitant]

REACTIONS (18)
  - BLOOD CHOLESTEROL INCREASED [None]
  - CENTRAL NERVOUS SYSTEM INFECTION [None]
  - CENTRAL NERVOUS SYSTEM LESION [None]
  - HEADACHE [None]
  - ILL-DEFINED DISORDER [None]
  - MOBILITY DECREASED [None]
  - NERVOUS SYSTEM DISORDER [None]
  - PARASITE BLOOD TEST POSITIVE [None]
  - PYREXIA [None]
  - RASH [None]
  - RICKETTSIOSIS [None]
  - SENSORY LOSS [None]
  - SKIN DISCOLOURATION [None]
  - SPINAL CORD INFECTION [None]
  - SPINAL DISORDER [None]
  - UNEVALUABLE EVENT [None]
  - WEIGHT DECREASED [None]
  - WHITE BLOOD CELL COUNT INCREASED [None]
